FAERS Safety Report 9009991 (Version 1)
Quarter: 2013Q1

REPORT INFORMATION
  Report Type: Spontaneous
  Country: US (occurrence: US)
  Receive Date: 20130110
  Receipt Date: 20130110
  Transmission Date: 20140127
  Serious: Yes (Other)
  Sender: FDA-Public Use
  Company Number: US-BRISTOL-MYERS SQUIBB COMPANY-17042565

PATIENT
  Age: 56 Year
  Sex: Male

DRUGS (1)
  1. NULOJIX [Suspect]
     Dosage: STRENGTH/POTENCY: 250MG.
     Route: 042

REACTIONS (2)
  - Transplant rejection [Unknown]
  - Drug ineffective [Unknown]
